FAERS Safety Report 23629303 (Version 2)
Quarter: 2024Q1

REPORT INFORMATION
  Report Type: Spontaneous
  Country: US (occurrence: US)
  Receive Date: 20240313
  Receipt Date: 20240319
  Transmission Date: 20240409
  Serious: Yes (Other)
  Sender: FDA-Public Use
  Company Number: US-JNJFOC-20240313005

PATIENT

DRUGS (1)
  1. REMICADE [Suspect]
     Active Substance: INFLIXIMAB
     Indication: Product used for unknown indication
     Route: 041

REACTIONS (7)
  - Rheumatoid arthritis [Unknown]
  - Pruritus [Unknown]
  - Insomnia [Unknown]
  - Hypersensitivity [Unknown]
  - Rash [Unknown]
  - Infusion related reaction [Unknown]
  - Drug ineffective [Unknown]
